FAERS Safety Report 6207746-3 (Version None)
Quarter: 2009Q2

REPORT INFORMATION
  Report Type: 
  Country: None (occurrence: None)
  Receive Date: 20090526
  Receipt Date: 20090518
  Transmission Date: 20091009
  Serious: Yes (Hospitalization)
  Sender: FDA-Public Use
  Company Number: TCI2009A00668

PATIENT
  Age: 72 Year
  Sex: Male

DRUGS (5)
  1. ACTOS [Suspect]
     Indication: TYPE 2 DIABETES MELLITUS
     Dosage: 15 MG (15 MG, 1 D) PER ORAL
     Route: 048
     Dates: start: 20080220, end: 20080605
  2. CANDESARTAN CILEXETIL [Concomitant]
  3. AMARYL [Concomitant]
  4. EPADEL S (ETHYL ICOSAPENTATE) [Concomitant]
  5. PLETAL [Concomitant]

REACTIONS (3)
  - ANGINA PECTORIS [None]
  - DYSPNOEA [None]
  - FACE OEDEMA [None]
